FAERS Safety Report 4399380-5 (Version None)
Quarter: 2004Q2

REPORT INFORMATION
  Report Type: 
  Country: None (occurrence: None)
  Receive Date: 20040607
  Receipt Date: 20040423
  Transmission Date: 20050107
  Serious: No
  Sender: FDA-Public Use
  Company Number: US-SHR-04-024455

PATIENT
  Age: 76 Year
  Sex: Female

DRUGS (1)
  1. CAMPATH [Suspect]
     Dosage: 3 MG 1 DOSE SUBCUTANEOUS
     Route: 058
     Dates: start: 20040419

REACTIONS (2)
  - INJECTION SITE INDURATION [None]
  - INJECTION SITE INFLAMMATION [None]
